FAERS Safety Report 5481078-3 (Version None)
Quarter: 2007Q4

REPORT INFORMATION
  Report Type: 
  Country: None (occurrence: None)
  Receive Date: 20071003
  Receipt Date: 20070918
  Transmission Date: 20080405
  Serious: Yes (Disabling)
  Sender: FDA-Public Use
  Company Number: 161699ISR

PATIENT
  Age: 56 Year
  Sex: Female

DRUGS (3)
  1. CITALOPRAM HYDROBROMIDE [Suspect]
     Indication: DEPRESSION
     Dosage: (20 MG) ORAL
     Route: 048
     Dates: start: 20070726
  2. CITALOPRAM HYDROBROMIDE [Suspect]
     Indication: HOT FLUSH
     Dosage: (20 MG) ORAL
     Route: 048
     Dates: start: 20070726
  3. METHOTREXATE [Suspect]
     Indication: RHEUMATOID ARTHRITIS
     Dosage: (1 IN 1 WK) ORAL
     Route: 048

REACTIONS (3)
  - CONDITION AGGRAVATED [None]
  - DRUG INTERACTION [None]
  - RHEUMATOID ARTHRITIS [None]
